FAERS Safety Report 4880345-1 (Version None)
Quarter: 2006Q1

REPORT INFORMATION
  Report Type: 
  Country: None (occurrence: None)
  Receive Date: 20060111
  Receipt Date: 20051229
  Transmission Date: 20060701
  Serious: Yes (Other)
  Sender: FDA-Public Use
  Company Number: 2006000139

PATIENT
  Age: 63 Year
  Sex: Male
  Weight: 95.2554 kg

DRUGS (11)
  1. ZMAX [Suspect]
     Indication: LUNG INFECTION
     Dosage: 1 IN 1 D, ORAL
     Route: 048
     Dates: start: 20051222, end: 20051222
  2. LIPITOR [Concomitant]
  3. ATACAND [Concomitant]
  4. COUMADIN [Concomitant]
  5. VERAPAMIL [Concomitant]
  6. ISOSORBIDE (ISOSORBIDE) [Concomitant]
  7. PROTONIX [Concomitant]
  8. FOLIC ACID [Concomitant]
  9. VITAMIN C (VITAMIN C) [Concomitant]
  10. ASPIRIN [Concomitant]
  11. NITROTABS (GLYCERYL TRINITRATE) [Concomitant]

REACTIONS (2)
  - ATRIAL FIBRILLATION [None]
  - TREATMENT NONCOMPLIANCE [None]
